FAERS Safety Report 8024604-2 (Version None)
Quarter: 2012Q1

REPORT INFORMATION
  Report Type: 
  Country: None (occurrence: None)
  Receive Date: 20120105
  Receipt Date: 20120104
  Transmission Date: 20120608
  Serious: Yes (Hospitalization)
  Sender: FDA-Public Use
  Company Number: BR-B.I. PHARMACEUTICALS,INC./RIDGEFIELD-2012-BR-00022BR

PATIENT
  Age: 75 Year
  Sex: Male

DRUGS (2)
  1. SPIRIVA [Suspect]
     Indication: CHRONIC OBSTRUCTIVE PULMONARY DISEASE
     Route: 055
     Dates: start: 20110801, end: 20111229
  2. ISOSORBIDE DINITRATE [Concomitant]
     Indication: CORONARY ARTERY DISEASE
     Route: 048

REACTIONS (9)
  - DYSURIA [None]
  - OLIGURIA [None]
  - DECREASED APPETITE [None]
  - DRY MOUTH [None]
  - RENAL FAILURE [None]
  - WEIGHT DECREASED [None]
  - COUGH [None]
  - PRURITUS GENERALISED [None]
  - BODY MASS INDEX DECREASED [None]
